FAERS Safety Report 18423693 (Version 2)
Quarter: 2021Q1

REPORT INFORMATION
  Report Type: Other
  Country: US (occurrence: US)
  Receive Date: 20201024
  Receipt Date: 20210104
  Transmission Date: 20210419
  Serious: Yes (Hospitalization, Other)
  Sender: FDA-Public Use
  Company Number: US-ROCHE-2696327

PATIENT
  Sex: Female
  Weight: 59.93 kg

DRUGS (17)
  1. CANNA OIL [Concomitant]
     Indication: MULTIPLE SCLEROSIS
     Dosage: ONGOING YES
  2. ACETAMINOPHEN. [Concomitant]
     Active Substance: ACETAMINOPHEN
  3. OCREVUS [Suspect]
     Active Substance: OCRELIZUMAB
     Indication: PRIMARY PROGRESSIVE MULTIPLE SCLEROSIS
     Dosage: ONGOING YES
     Route: 042
     Dates: start: 20180605
  4. DIPHENHYDRAMINE HCL [Concomitant]
     Active Substance: DIPHENHYDRAMINE HYDROCHLORIDE
  5. RECLAST [Suspect]
     Active Substance: ZOLEDRONIC ACID
     Indication: PRODUCT USED FOR UNKNOWN INDICATION
     Route: 065
     Dates: start: 2018
  6. VITAMIN D3 [Concomitant]
     Active Substance: CHOLECALCIFEROL
     Dosage: ONGOING YES
     Route: 048
  7. DULCOLAXO [Concomitant]
     Indication: CONSTIPATION
     Dosage: ONGOING YES
     Route: 048
  8. SHINGRIX [Suspect]
     Active Substance: RECOMBINANT VARICELLA ZOSTER VIRUS (VZV) GLYCOPROTEIN E
     Indication: PRODUCT USED FOR UNKNOWN INDICATION
     Route: 065
     Dates: start: 2019
  9. MAGNESIUM MALATE. [Concomitant]
     Active Substance: MAGNESIUM MALATE
     Dosage: ONGOING YES
     Route: 048
  10. HYLAND^S LEG CRAMPS PM [Concomitant]
     Active Substance: HOMEOPATHICS
  11. ACIDOPHILUS [Concomitant]
     Active Substance: LACTOBACILLUS ACIDOPHILUS
     Dosage: ONGOING YES
     Route: 048
  12. DRAMAMINE [Concomitant]
     Active Substance: DIMENHYDRINATE
     Dosage: ONGOING YES
     Route: 048
  13. METHYLPREDNISOLONE. [Concomitant]
     Active Substance: METHYLPREDNISOLONE
  14. BONE STRENGTH [Concomitant]
     Dosage: CONTAINS CALCIUM, MAGNESIUM AND VITAMINS K2 AND K3 ;ONGOING: YES
     Route: 048
  15. CRANBERRY. [Concomitant]
     Active Substance: CRANBERRY
     Dosage: ONGOING YES
     Route: 048
  16. MEDICAL MARIJUANA [Concomitant]
     Active Substance: CANNABIS SATIVA SUBSP. INDICA TOP
     Indication: MULTIPLE SCLEROSIS
     Dosage: ONGOING YES
     Route: 061
  17. NORMAL SALINE [Concomitant]
     Active Substance: SODIUM CHLORIDE

REACTIONS (4)
  - Paralysis [Recovered/Resolved]
  - Endometrial adenocarcinoma [Unknown]
  - Urinary tract infection [Recovered/Resolved]
  - Urinary incontinence [Recovered/Resolved]

NARRATIVE: CASE EVENT DATE: 2018
